FAERS Safety Report 20453731 (Version 1)
Quarter: 2022Q1

REPORT INFORMATION
  Report Type: Spontaneous
  Country: RU (occurrence: RU)
  Receive Date: 20220210
  Receipt Date: 20220210
  Transmission Date: 20220424
  Serious: Yes (Congenital Anomaly, Other)
  Sender: FDA-Public Use
  Company Number: RU-ABBVIE-22K-251-4271709-00

PATIENT

DRUGS (2)
  1. VALPROATE SODIUM [Suspect]
     Active Substance: VALPROATE SODIUM
     Indication: Maternal exposure timing unspecified
     Route: 064
  2. LEVETIRACETAM [Suspect]
     Active Substance: LEVETIRACETAM
     Indication: Maternal exposure timing unspecified
     Route: 064

REACTIONS (4)
  - Heart disease congenital [Unknown]
  - Congenital central nervous system anomaly [Unknown]
  - Foetal exposure during pregnancy [Unknown]
  - Medication error [Unknown]
